FAERS Safety Report 9433559 (Version 2)
Quarter: 2013Q3

REPORT INFORMATION
  Report Type: Report from Study
  Country: BR (occurrence: BR)
  Receive Date: 20130731
  Receipt Date: 20130814
  Transmission Date: 20140515
  Serious: Yes (Death, Hospitalization, Other)
  Sender: FDA-Public Use
  Company Number: BR-BRISTOL-MYERS SQUIBB COMPANY-19148568

PATIENT
  Age: 61 Year
  Sex: Female

DRUGS (3)
  1. BELATACEPT [Suspect]
     Indication: RENAL TRANSPLANT
     Route: 042
     Dates: start: 20070115
  2. PREDNISONE [Suspect]
     Dates: start: 20110822
  3. MYCOPHENOLATE MOFETIL [Suspect]
     Dates: start: 20110408

REACTIONS (3)
  - Adenocarcinoma [Fatal]
  - Thrombocytopenia [Fatal]
  - Anaemia [Fatal]
